FAERS Safety Report 5407696-6 (Version None)
Quarter: 2007Q3

REPORT INFORMATION
  Report Type: 
  Country: None (occurrence: None)
  Receive Date: 20070803
  Receipt Date: 20070724
  Transmission Date: 20080115
  Serious: Yes (Other)
  Sender: FDA-Public Use
  Company Number: 02100-USA-07-0012

PATIENT
  Age: 58 Year
  Sex: Male

DRUGS (5)
  1. CILOSTAZOL [Suspect]
     Indication: PERIPHERAL VASCULAR DISORDER
     Dosage: 1DF ORAL
     Route: 048
  2. AMLODIPINE BESYLATE AND ATORVASTATIN CALIUM [Suspect]
     Indication: BLOOD PRESSURE
     Dosage: 1DF
  3. CLOPIDOGREL BISULFATE [Suspect]
     Indication: BLOOD CHOLESTEROL
     Dosage: 1 DF
  4. METOPROLOL SUCCINATE [Suspect]
     Dosage: 1 DF
  5. VARENICLINE [Suspect]
     Indication: SMOKING CESSATION THERAPY
     Dosage: 1 DF

REACTIONS (4)
  - CONDITION AGGRAVATED [None]
  - LUNG NEOPLASM MALIGNANT [None]
  - NAUSEA [None]
  - ORAL INTAKE REDUCED [None]
